FAERS Safety Report 8362083-6 (Version None)
Quarter: 2012Q2

REPORT INFORMATION
  Report Type: 
  Country: None (occurrence: None)
  Receive Date: 20120515
  Receipt Date: 20120511
  Transmission Date: 20120825
  Serious: No
  Sender: FDA-Public Use
  Company Number: US-PFIZER INC-2012096222

PATIENT
  Sex: Female

DRUGS (7)
  1. DARVOCET-N 50 [Concomitant]
     Dosage: UNK
  2. CHANTIX [Suspect]
     Dosage: UNK, DAILY
     Dates: start: 20110101
  3. ADDERALL 5 [Concomitant]
     Dosage: UNK
  4. CHANTIX [Suspect]
     Dosage: UNK, DAILY
     Dates: start: 20110101, end: 20110101
  5. CHANTIX [Suspect]
     Indication: SMOKING CESSATION THERAPY
     Dosage: UNK, DAILY
     Dates: start: 20091001, end: 20100101
  6. CHANTIX [Suspect]
     Dosage: UNK, DAILY
     Dates: start: 20100101
  7. CLONIDINE [Concomitant]
     Dosage: UNK

REACTIONS (1)
  - NO ADVERSE EVENT [None]
